FAERS Safety Report 8060761-X (Version None)
Quarter: 2012Q1

REPORT INFORMATION
  Report Type: 
  Country: None (occurrence: None)
  Receive Date: 20120120
  Receipt Date: 20110105
  Transmission Date: 20120608
  Serious: No
  Sender: FDA-Public Use
  Company Number: US-ALLERGAN-1100136US

PATIENT
  Age: 89 Year
  Sex: Female

DRUGS (4)
  1. AZOPT [Concomitant]
     Indication: GLAUCOMA
     Dosage: UNK
  2. RESTASIS [Suspect]
     Indication: DRY EYE
     Dosage: 1 GTT, BID
     Route: 047
     Dates: start: 20101221
  3. TIMOLOL MALEATE [Concomitant]
     Indication: GLAUCOMA
     Dosage: UNK
  4. TRAVATAN Z [Concomitant]
     Indication: GLAUCOMA
     Dosage: UNK

REACTIONS (1)
  - EYE IRRITATION [None]
